FAERS Safety Report 8100452-X (Version None)
Quarter: 2012Q1

REPORT INFORMATION
  Report Type: 
  Country: None (occurrence: None)
  Receive Date: 20120129
  Receipt Date: 20111115
  Transmission Date: 20120608
  Serious: No
  Sender: FDA-Public Use
  Company Number: US-ABBOTT-11P-163-0870539-00

PATIENT
  Sex: Male

DRUGS (7)
  1. LIPITOR [Concomitant]
     Indication: BLOOD CHOLESTEROL
  2. HUMIRA [Suspect]
     Indication: PSORIASIS
     Route: 058
     Dates: start: 20110901
  3. FISH OIL [Concomitant]
     Indication: SUPPLEMENTATION THERAPY
     Dosage: 2-3 CAPSULES A DAY
  4. LEVOBUNOLOL HCL [Concomitant]
     Indication: INTRAOCULAR PRESSURE TEST
     Dosage: 1 DROP INTO EACH EYE
     Route: 047
  5. TORPOL XL [Concomitant]
     Indication: HYPERTENSION
     Dosage: 100 MG DAILY
  6. BENICAR [Concomitant]
     Indication: HYPERTENSION
     Dosage: 50 MG DAILY
  7. ASPIRIN [Concomitant]
     Indication: PRODUCT USED FOR UNKNOWN INDICATION
     Dosage: 81 MG DAILY

REACTIONS (2)
  - HAEMATOMA [None]
  - CONTUSION [None]
